FAERS Safety Report 6779071-3 (Version None)
Quarter: 2010Q2

REPORT INFORMATION
  Report Type: 
  Country: None (occurrence: None)
  Receive Date: 20100618
  Receipt Date: 20100608
  Transmission Date: 20101027
  Serious: Yes (Disabling)
  Sender: FDA-Public Use
  Company Number: FR-PFIZER INC-2010017376

PATIENT
  Age: 68 Year
  Sex: Male
  Weight: 83 kg

DRUGS (4)
  1. VIAGRA [Suspect]
     Indication: ERECTILE DYSFUNCTION
     Dosage: 50 MG, SINGLE
     Route: 048
     Dates: start: 20100324
  2. KARDEGIC [Concomitant]
     Dosage: 75 UNK, 1X/DAY
     Route: 048
     Dates: start: 20071004
  3. FLECAINIDE [Concomitant]
     Indication: SUPRAVENTRICULAR EXTRASYSTOLES
     Dosage: 200 UNK, 1X/DAY
     Route: 048
     Dates: start: 20071004
  4. LERCAN [Concomitant]
     Indication: HYPERTENSION
     Dosage: 10 UNK, 1X/DAY
     Route: 048
     Dates: start: 20071004

REACTIONS (1)
  - ATRIAL FIBRILLATION [None]
